FAERS Safety Report 8107301-4 (Version None)
Quarter: 2011Q4

REPORT INFORMATION
  Report Type: 
  Country: None (occurrence: None)
  Receive Date: 20111227
  Receipt Date: 20110930
  Transmission Date: 20120403
  Serious: Yes (Hospitalization)
  Sender: FDA-Public Use
  Company Number: PHEH2011US03658

PATIENT
  Age: 52 Year
  Sex: Male

DRUGS (8)
  1. HYDROCODONE BITARTRATE [Concomitant]
  2. GILENYA [Suspect]
     Indication: MULTIPLE SCLEROSIS
     Dosage: 0.5 MG, QD, ORAL
     Route: 048
     Dates: start: 20110307
  3. MACRODANTIN [Concomitant]
  4. SOMA [Concomitant]
  5. PROTONIX ^WYETH-AYERST^ (PANTOPRAZOLE SODIUM) [Concomitant]
  6. VITAMN D (ERGOCALCIFEROL) [Concomitant]
  7. LOVENOX [Concomitant]
  8. SPIRONOLACTONE [Concomitant]

REACTIONS (15)
  - MULTIPLE SCLEROSIS RELAPSE [None]
  - TEMPERATURE INTOLERANCE [None]
  - DIPLEGIA [None]
  - DECREASED VIBRATORY SENSE [None]
  - DEPRESSION [None]
  - ABDOMINAL DISCOMFORT [None]
  - TEMPERATURE PERCEPTION TEST DECREASED [None]
  - HYPOAESTHESIA [None]
  - MUSCULAR WEAKNESS [None]
  - MEMORY IMPAIRMENT [None]
  - NEUROGENIC BLADDER [None]
  - GAIT DISTURBANCE [None]
  - NIGHT SWEATS [None]
  - PARAPLEGIA [None]
  - ARTHRALGIA [None]
